FAERS Safety Report 13051074 (Version 1)
Quarter: 2016Q4

REPORT INFORMATION
  Report Type: Spontaneous
  Country: US (occurrence: US)
  Receive Date: 20161221
  Receipt Date: 20161221
  Transmission Date: 20170207
  Serious: No
  Sender: FDA-Public Use
  Company Number: US-ENDO PHARMACEUTICALS INC.-2016-003241

PATIENT
  Sex: Female
  Weight: 106.69 kg

DRUGS (7)
  1. OPANA ER [Suspect]
     Active Substance: OXYMORPHONE HYDROCHLORIDE
     Indication: PAIN
     Route: 048
     Dates: start: 2014
  2. OPANA [Suspect]
     Active Substance: OXYMORPHONE HYDROCHLORIDE
     Indication: COMPLEX REGIONAL PAIN SYNDROME
     Route: 048
     Dates: start: 2014
  3. OPANA ER [Suspect]
     Active Substance: OXYMORPHONE HYDROCHLORIDE
     Indication: COMPLEX REGIONAL PAIN SYNDROME
  4. OPANA [Suspect]
     Active Substance: OXYMORPHONE HYDROCHLORIDE
     Indication: PAIN
     Route: 048
  5. TOPIRAMATE. [Concomitant]
     Active Substance: TOPIRAMATE
     Indication: COMPLEX REGIONAL PAIN SYNDROME
  6. CYMBALTA [Concomitant]
     Active Substance: DULOXETINE HYDROCHLORIDE
     Indication: PAIN
  7. TOPIRAMATE. [Concomitant]
     Active Substance: TOPIRAMATE
     Indication: BURNING SENSATION

REACTIONS (3)
  - Burning sensation [Not Recovered/Not Resolved]
  - Body temperature increased [Not Recovered/Not Resolved]
  - Skin discolouration [Not Recovered/Not Resolved]
